FAERS Safety Report 5933843-3 (Version None)
Quarter: 2008Q4

REPORT INFORMATION
  Report Type: 
  Country: None (occurrence: None)
  Receive Date: 20081029
  Receipt Date: 20081027
  Transmission Date: 20090506
  Serious: Yes (Hospitalization)
  Sender: FDA-Public Use
  Company Number: FR-BRISTOL-MYERS SQUIBB COMPANY-14354393

PATIENT
  Age: 5 Year
  Sex: Female

DRUGS (4)
  1. AMIKLIN INJ [Suspect]
     Indication: LUNG DISORDER
     Dates: start: 20080829, end: 20080830
  2. CLAFORAN [Suspect]
     Indication: LUNG DISORDER
     Dates: start: 20080828, end: 20080904
  3. JOSAMYCIN [Suspect]
  4. VANCOMYCIN HYDROCHLORIDE [Suspect]
     Dates: start: 20080830, end: 20080904

REACTIONS (1)
  - CLOSTRIDIUM DIFFICILE COLITIS [None]
